FAERS Safety Report 18937187 (Version 4)
Quarter: 2021Q2

REPORT INFORMATION
  Report Type: Other
  Country: AR (occurrence: AR)
  Receive Date: 20210225
  Receipt Date: 20210503
  Transmission Date: 20210717
  Serious: Yes (Other)
  Sender: FDA-Public Use
  Company Number: AR-ROCHE-2613631

PATIENT
  Age: 38 Year
  Sex: Female

DRUGS (8)
  1. XOLAIR [Suspect]
     Active Substance: OMALIZUMAB
     Indication: ASTHMA
     Route: 058
     Dates: start: 20191021
  2. XOLAIR [Suspect]
     Active Substance: OMALIZUMAB
     Dosage: (3 X 150 MG)
     Route: 065
     Dates: start: 20191021
  3. XOLAIR [Suspect]
     Active Substance: OMALIZUMAB
     Route: 065
     Dates: end: 201911
  4. XOLAIR [Suspect]
     Active Substance: OMALIZUMAB
     Route: 065
  5. XOLAIR [Suspect]
     Active Substance: OMALIZUMAB
     Indication: ASTHMA
     Dosage: (3 DF)
     Route: 065
     Dates: start: 20191021, end: 20191204
  6. XOLAIR [Suspect]
     Active Substance: OMALIZUMAB
     Route: 065
     Dates: start: 20200127
  7. INCRUSE ELLIPTA [Concomitant]
     Active Substance: UMECLIDINIUM BROMIDE
     Indication: PRODUCT USED FOR UNKNOWN INDICATION
     Route: 065
  8. XOLAIR [Suspect]
     Active Substance: OMALIZUMAB
     Route: 065
     Dates: start: 201912, end: 20191204

REACTIONS (24)
  - Chest discomfort [Recovering/Resolving]
  - Wheezing [Not Recovered/Not Resolved]
  - Cough [Recovering/Resolving]
  - Malaise [Recovering/Resolving]
  - Sensitivity to weather change [Unknown]
  - Headache [Recovering/Resolving]
  - Nervousness [Recovering/Resolving]
  - Toothache [Recovering/Resolving]
  - Paraesthesia [Recovering/Resolving]
  - Asthma [Unknown]
  - Influenza [Recovering/Resolving]
  - Asthma [Unknown]
  - Pyrexia [Recovering/Resolving]
  - Stress [Recovering/Resolving]
  - Drug ineffective [Unknown]
  - Pulmonary congestion [Recovering/Resolving]
  - Facial paralysis [Recovering/Resolving]
  - Hypertension [Recovering/Resolving]
  - Speech disorder [Unknown]
  - Agitation [Unknown]
  - Bronchospasm [Not Recovered/Not Resolved]
  - Anxiety [Not Recovered/Not Resolved]
  - Dyspnoea [Unknown]
  - COVID-19 [Recovering/Resolving]

NARRATIVE: CASE EVENT DATE: 20191021
